FAERS Safety Report 5051251-7 (Version None)
Quarter: 2006Q3

REPORT INFORMATION
  Report Type: 
  Country: None (occurrence: None)
  Receive Date: 20060714
  Receipt Date: 20060706
  Transmission Date: 20061208
  Serious: Yes (Hospitalization)
  Sender: FDA-Public Use
  Company Number: PHEH2006US08630

PATIENT
  Sex: Female

DRUGS (5)
  1. COMTAN [Suspect]
     Indication: PARKINSON'S DISEASE
     Dosage: 200 MG, UNK
     Route: 048
     Dates: start: 20060607, end: 20060618
  2. COMTAN [Suspect]
     Dosage: 200 MG, UNK
     Route: 048
     Dates: start: 20060620
  3. CARBIDOPA W/LEVODOPA [Suspect]
  4. MIRAPEX [Suspect]
  5. AMANTADINE HCL [Suspect]

REACTIONS (4)
  - CHEST DISCOMFORT [None]
  - DISEASE RECURRENCE [None]
  - DIZZINESS [None]
  - PALPITATIONS [None]
